FAERS Safety Report 15401678 (Version 1)
Quarter: 2018Q3

REPORT INFORMATION
  Report Type: Spontaneous
  Country: US (occurrence: US)
  Receive Date: 20180919
  Receipt Date: 20180919
  Transmission Date: 20181010
  Serious: Yes (Other)
  Sender: FDA-Public Use
  Company Number: PHEH2018US038532

PATIENT
  Sex: Male

DRUGS (2)
  1. BELATACEPT [Concomitant]
     Active Substance: BELATACEPT
     Indication: RENAL TRANSPLANT
     Route: 065
  2. ZORTRESS [Suspect]
     Active Substance: EVEROLIMUS
     Indication: RENAL TRANSPLANT
     Route: 065

REACTIONS (4)
  - Ileal ulcer [Unknown]
  - Aphthous ulcer [Unknown]
  - Anal ulcer [Unknown]
  - Abdominal pain [Unknown]
